FAERS Safety Report 19125145 (Version 1)
Quarter: 2021Q2

REPORT INFORMATION
  Report Type: Spontaneous
  Country: EG (occurrence: EG)
  Receive Date: 20210413
  Receipt Date: 20210413
  Transmission Date: 20210717
  Serious: Yes (Other)
  Sender: FDA-Public Use
  Company Number: EG-HIKMA PHARMACEUTICALS USA INC.-EG-H14001-21-01721

PATIENT
  Age: 65 Year
  Sex: Female

DRUGS (3)
  1. UNITAXEL [Suspect]
     Active Substance: PACLITAXEL
     Route: 041
     Dates: start: 2020
  2. UNITAXEL [Suspect]
     Active Substance: PACLITAXEL
     Indication: BREAST CANCER
     Route: 041
     Dates: start: 2020
  3. EUTHYROX [Concomitant]
     Active Substance: LEVOTHYROXINE SODIUM
     Indication: HYPOTHYROIDISM
     Route: 065

REACTIONS (6)
  - Skin exfoliation [Unknown]
  - Dyspnoea [Unknown]
  - Pain in extremity [Unknown]
  - Dry skin [Unknown]
  - Cataract [Unknown]
  - Nail pigmentation [Unknown]

NARRATIVE: CASE EVENT DATE: 20210202
